FAERS Safety Report 4588157-3 (Version None)
Quarter: 2005Q1

REPORT INFORMATION
  Report Type: 
  Country: None (occurrence: None)
  Receive Date: 20050221
  Receipt Date: 20050216
  Transmission Date: 20050727
  Serious: Yes (Death)
  Sender: FDA-Public Use
  Company Number: PHBS2005IE02392

PATIENT
  Sex: Female

DRUGS (1)
  1. GLEEVEC [Suspect]
     Indication: ADENOID CYSTIC CARCINOMA
     Dosage: 400 MG/DAY

REACTIONS (1)
  - PNEUMONIA ASPIRATION [None]
